FAERS Safety Report 6139087-7 (Version None)
Quarter: 2009Q1

REPORT INFORMATION
  Report Type: 
  Country: None (occurrence: None)
  Receive Date: 20090324
  Receipt Date: 20090316
  Transmission Date: 20090719
  Serious: Yes (Hospitalization)
  Sender: FDA-Public Use
  Company Number: 238694J08USA

PATIENT
  Age: 53 Year
  Sex: Female

DRUGS (14)
  1. REBIF [Suspect]
     Indication: MULTIPLE SCLEROSIS
     Dosage: 44 MCG, SUBCUTANEOUS
     Route: 058
     Dates: start: 20070307, end: 20080501
  2. UNSPECIFIED MEDICATIONS (ALL OTHER THERAPEUTIC PRODUCTS) [Concomitant]
  3. HYDROCODONE/ APAP A(PROCET /01554201/) [Concomitant]
  4. FLEXERIL [Concomitant]
  5. NITRO-BID [Concomitant]
  6. CLONAZEPAM [Concomitant]
  7. LYRICA [Concomitant]
  8. ASPIRIN [Concomitant]
  9. METOPROLOL (METOPROLOL /00376901/) [Concomitant]
  10. CYMBALTA [Concomitant]
  11. KEPPRA [Concomitant]
  12. SEROQUEL [Concomitant]
  13. LISINOPRIL [Concomitant]
  14. MULTIVITAMIN (MULTIVITAMIN /00831701/) [Concomitant]

REACTIONS (9)
  - GASTROENTERITIS [None]
  - HYPERTENSION [None]
  - LEFT VENTRICULAR DYSFUNCTION [None]
  - LEFT VENTRICULAR END-DIASTOLIC PRESSURE INCREASED [None]
  - MITRAL VALVE INCOMPETENCE [None]
  - MYOCARDIAL INFARCTION [None]
  - PULMONARY VALVE INCOMPETENCE [None]
  - REFLUX OESOPHAGITIS [None]
  - TRICUSPID VALVE INCOMPETENCE [None]
